FAERS Safety Report 9660508 (Version 1)
Quarter: 2013Q4

REPORT INFORMATION
  Report Type: Spontaneous
  Country: GB (occurrence: GB)
  Receive Date: 20131031
  Receipt Date: 20131031
  Transmission Date: 20140711
  Serious: Yes (Other)
  Sender: FDA-Public Use
  Company Number: PHHY2013GB119368

PATIENT
  Age: 50 Year
  Sex: Female
  Weight: 75 kg

DRUGS (2)
  1. RAMIPRIL [Suspect]
     Dosage: 2.5 MG, UNK
     Route: 048
     Dates: start: 20130719, end: 20130723
  2. CANDESARTAN [Suspect]
     Dosage: 8 MG, UNK
     Route: 048
     Dates: start: 20130723, end: 20131007

REACTIONS (3)
  - Hypoaesthesia [Recovering/Resolving]
  - Nervousness [Recovering/Resolving]
  - Mydriasis [Recovering/Resolving]
